FAERS Safety Report 17568029 (Version 1)
Quarter: 2020Q1

REPORT INFORMATION
  Report Type: Spontaneous
  Country: DE (occurrence: DE)
  Receive Date: 20200320
  Receipt Date: 20200320
  Transmission Date: 20200409
  Serious: Yes (Hospitalization)
  Sender: FDA-Public Use
  Company Number: DE-NAPPMUNDI-GBR-2020-0075743

PATIENT
  Age: 62 Year
  Sex: Male

DRUGS (8)
  1. METAMIZOLE [Concomitant]
     Active Substance: METAMIZOLE
     Dosage: UNK (500 MG, 1-1-1-1, TABLETTEN)
  2. TORASEMID [Suspect]
     Active Substance: TORSEMIDE
     Indication: PRODUCT USED FOR UNKNOWN INDICATION
     Dosage: 10 MG, UNK (10 MG, 1-0-0-0, TABLETTEN)
     Route: 065
  3. MAALOXAN                           /00082501/ [Concomitant]
     Dosage: UNK
  4. RIVAROXABAN [Concomitant]
     Active Substance: RIVAROXABAN
     Dosage: UNK (20 MG, 0-1-0-0, TABLETTEN)
  5. OXYCODONE HYDROCHLORIDE. [Suspect]
     Active Substance: OXYCODONE HYDROCHLORIDE
     Indication: PRODUCT USED FOR UNKNOWN INDICATION
     Dosage: 10 MG, UNK (10 MG, 1-0-1-0, KAPSELN)
     Route: 065
  6. METOPROLOL. [Concomitant]
     Active Substance: METOPROLOL
     Dosage: UNK (23.75 MG, 0.5-0-0.5-0, RETARD-TABLETTEN)
  7. BISACODYL. [Concomitant]
     Active Substance: BISACODYL
     Dosage: UNK (10 MG, BEDARF, SUPPOSITORIEN)
  8. PANTOPRAZOL [Concomitant]
     Active Substance: PANTOPRAZOLE SODIUM
     Dosage: 40 MG, UNK (40 MG, 1-0-0-0, TABLETTEN)

REACTIONS (2)
  - Abdominal pain upper [Recovered/Resolved]
  - Renal impairment [Recovered/Resolved]
